FAERS Safety Report 11191964 (Version 1)
Quarter: 2015Q2

REPORT INFORMATION
  Report Type: Spontaneous
  Country: US (occurrence: None)
  Receive Date: 20150615
  Receipt Date: 20150615
  Transmission Date: 20150821
  Serious: No
  Sender: FDA-Public Use
  Company Number: None

PATIENT
  Age: 59 Year
  Sex: Male

DRUGS (15)
  1. ZOFRAN [Concomitant]
     Active Substance: ONDANSETRON HYDROCHLORIDE
  2. LEVOTHYROXIN [Concomitant]
     Active Substance: LEVOTHYROXINE
  3. SUTENT [Concomitant]
     Active Substance: SUNITINIB MALATE
  4. PROCHLORPER [Concomitant]
  5. AUGMENTIN [Concomitant]
     Active Substance: AMOXICILLIN\CLAVULANATE POTASSIUM
  6. MULTIVITAMIN TAB MINERALS [Concomitant]
  7. COUMADIN [Concomitant]
     Active Substance: WARFARIN SODIUM
  8. AFINITOR [Suspect]
     Active Substance: EVEROLIMUS
     Indication: RENAL CANCER
     Route: 048
     Dates: start: 20150602
  9. RANITIDINE [Concomitant]
     Active Substance: RANITIDINE\RANITIDINE HYDROCHLORIDE
  10. FONDAPARINUX [Concomitant]
     Active Substance: FONDAPARINUX
  11. SPIRONOLACT [Concomitant]
  12. IRON [Concomitant]
     Active Substance: IRON
  13. LORAZEPAM. [Concomitant]
     Active Substance: LORAZEPAM
  14. AMPHETAMINE [Concomitant]
     Active Substance: AMPHETAMINE
  15. PROZAC [Concomitant]
     Active Substance: FLUOXETINE HYDROCHLORIDE

REACTIONS (2)
  - Fatigue [None]
  - Stomatitis [None]

NARRATIVE: CASE EVENT DATE: 20150605
